FAERS Safety Report 26172166 (Version 1)
Quarter: 2025Q4

REPORT INFORMATION
  Report Type: Report from Study
  Country: GB (occurrence: GB)
  Receive Date: 20251218
  Receipt Date: 20251218
  Transmission Date: 20260117
  Serious: Yes (Hospitalization, Other)
  Sender: CELLTRION
  Company Number: GB-CELLTRION INC.-2025GB018383

PATIENT

DRUGS (2)
  1. INFLIXIMAB-DYYB [Suspect]
     Active Substance: INFLIXIMAB-DYYB
     Indication: Crohn^s disease
     Dosage: 120 MILLIGRAM PER MILLILITRE, Q2WEEKSINJECT ONE PRE-FILLED PEN EVERY TWO WEEKS
     Route: 058
     Dates: start: 202504
  2. INFLIXIMAB-DYYB [Suspect]
     Active Substance: INFLIXIMAB-DYYB
     Dosage: 120 MILLIGRAM PER MILLILITRE, Q2WEEKS
     Route: 058
     Dates: start: 202505

REACTIONS (11)
  - Swelling [Unknown]
  - Infection [Unknown]
  - Stress [Unknown]
  - Weight increased [Unknown]
  - Abdominal pain upper [Unknown]
  - Asthenia [Unknown]
  - Urinary incontinence [Unknown]
  - Sensitive skin [Unknown]
  - Fatigue [Unknown]
  - Urinary tract infection [Unknown]
  - Rash [Unknown]
